FAERS Safety Report 13491967 (Version 1)
Quarter: 2017Q2

REPORT INFORMATION
  Report Type: Other
  Country: GB (occurrence: GB)
  Receive Date: 20170427
  Receipt Date: 20170427
  Transmission Date: 20170830
  Serious: Yes (Hospitalization)
  Sender: FDA-Public Use
  Company Number: GB-APOTEX-2017AP010959

PATIENT
  Age: 74 Year
  Sex: Male

DRUGS (2)
  1. CLOPIDOGREL APOTEX [Suspect]
     Active Substance: CLOPIDOGREL BISULFATE
     Indication: PROPHYLAXIS
     Dosage: 75 MG, UNK
     Route: 048
     Dates: start: 20170120, end: 20170405
  2. ASPIRIN                            /00002701/ [Suspect]
     Active Substance: ASPIRIN
     Indication: PROPHYLAXIS
     Dosage: 75 MG, QD
     Route: 048
     Dates: start: 20170125, end: 20170405

REACTIONS (2)
  - Melaena [Unknown]
  - Gastrointestinal haemorrhage [Recovered/Resolved]
